FAERS Safety Report 5566294-4 (Version None)
Quarter: 2007Q4

REPORT INFORMATION
  Report Type: 
  Country: None (occurrence: None)
  Receive Date: 20071214
  Receipt Date: 20071204
  Transmission Date: 20080405
  Serious: Yes (Hospitalization)
  Sender: FDA-Public Use
  Company Number: 2007-05519

PATIENT
  Age: 89 Year
  Sex: Female
  Weight: 64 kg

DRUGS (17)
  1. GEMFIBROZIL [Suspect]
     Indication: DRUG USE FOR UNKNOWN INDICATION
  2. AROMASIN [Suspect]
     Indication: BREAST CANCER
     Dosage: 25 MG, DAILY, ORAL
     Route: 048
     Dates: start: 20060809
  3. LIPITOR [Suspect]
     Indication: DRUG USE FOR UNKNOWN INDICATION
  4. TOPROL-XL [Suspect]
     Indication: DRUG USE FOR UNKNOWN INDICATION
  5. LISINOPRIL AND HYDROCHLOROTHIAZIDE [Suspect]
     Indication: DRUG USE FOR UNKNOWN INDICATION
  6. INFLUENZA VACCINE(INFLUENZA VACCINE) [Suspect]
     Dosage: SINGLE
     Dates: start: 20071017, end: 20071017
  7. ASPIRIN [Concomitant]
  8. CALCIUM [Concomitant]
  9. NORVASC [Concomitant]
  10. PLAVIX [Concomitant]
  11. CHONDROITIN SULFATE (CHONDROITIN SULFATE) [Concomitant]
  12. LEVOTHYROXINE SODIUM [Concomitant]
  13. LIDODERM [Concomitant]
  14. MULTIVITAMINS (RETINOL, RIBOFLAVIN, NICOTINAMIDE, PANTHENOL) [Concomitant]
  15. OMEGA 3 (FISH OIL) [Concomitant]
  16. SALICYLATES (SALICYLATES) [Concomitant]
  17. ZETIA [Concomitant]

REACTIONS (11)
  - BACK PAIN [None]
  - BASILAR ARTERY STENOSIS [None]
  - BLOOD CREATININE INCREASED [None]
  - BURSITIS [None]
  - CONFUSIONAL STATE [None]
  - FATIGUE [None]
  - HYPOACUSIS [None]
  - OSTEOARTHRITIS [None]
  - SPINAL OSTEOARTHRITIS [None]
  - TRANSIENT ISCHAEMIC ATTACK [None]
  - VISION BLURRED [None]
